FAERS Safety Report 4382361-5 (Version None)
Quarter: 2004Q2

REPORT INFORMATION
  Report Type: 
  Country: None (occurrence: None)
  Receive Date: 20040621
  Receipt Date: 20040621
  Transmission Date: 20050107
  Serious: Yes (Other)
  Sender: FDA-Public Use
  Company Number: None

PATIENT
  Age: 55 Year
  Sex: Female
  Weight: 86.1834 kg

DRUGS (2)
  1. PAXIL [Suspect]
     Indication: ANXIETY
     Dosage: 40 MG PER DAY ORAL
     Route: 048
     Dates: start: 20010401, end: 20040610
  2. PAXIL [Suspect]
     Indication: DEPRESSION
     Dosage: 40 MG PER DAY ORAL
     Route: 048
     Dates: start: 20010401, end: 20040610

REACTIONS (3)
  - DRUG WITHDRAWAL SYNDROME [None]
  - MUSCLE TWITCHING [None]
  - TINNITUS [None]
